FAERS Safety Report 4499630-0 (Version None)
Quarter: 2004Q4

REPORT INFORMATION
  Report Type: 
  Country: None (occurrence: None)
  Receive Date: 20041110
  Receipt Date: 20041110
  Transmission Date: 20050328
  Serious: Yes (Disabling)
  Sender: FDA-Public Use
  Company Number: None

PATIENT
  Age: 41 Year
  Sex: Male
  Weight: 102.0593 kg

DRUGS (2)
  1. BEXTRA [Suspect]
     Dosage: 10 MG PER DAY ORAL
     Route: 048
     Dates: start: 20041004, end: 20041018
  2. BEXTRA [Suspect]
     Dosage: 20 MG  PER DAY ORAL
     Route: 048
     Dates: start: 20041018, end: 20041101

REACTIONS (2)
  - ARTHROPATHY [None]
  - PAIN IN EXTREMITY [None]
